FAERS Safety Report 7383310-8 (Version None)
Quarter: 2011Q1

REPORT INFORMATION
  Report Type: 
  Country: None (occurrence: None)
  Receive Date: 20110330
  Receipt Date: 20110318
  Transmission Date: 20110831
  Serious: Yes (Hospitalization)
  Sender: FDA-Public Use
  Company Number: FR-SANOFI-AVENTIS-2011SA016647

PATIENT
  Age: 78 Year
  Sex: Male

DRUGS (6)
  1. AUGMENTIN [Suspect]
     Route: 048
     Dates: start: 20110115, end: 20110125
  2. SERESTA [Suspect]
     Indication: INSOMNIA
     Route: 048
     Dates: start: 20110115, end: 20110125
  3. ELISOR [Concomitant]
     Route: 048
  4. ACETAMINOPHEN [Suspect]
     Route: 048
     Dates: start: 20110115, end: 20110125
  5. PREVISCAN [Concomitant]
     Indication: SUPRAVENTRICULAR TACHYCARDIA
     Route: 048
  6. MULTAQ [Suspect]
     Indication: SUPRAVENTRICULAR TACHYCARDIA
     Route: 048
     Dates: start: 20101115, end: 20110125

REACTIONS (3)
  - HEPATITIS ACUTE [None]
  - JAUNDICE [None]
  - CHOLESTATIC LIVER INJURY [None]
